FAERS Safety Report 6294953-7 (Version None)
Quarter: 2009Q3

REPORT INFORMATION
  Report Type: 
  Country: None (occurrence: None)
  Receive Date: 20090803
  Receipt Date: 20090723
  Transmission Date: 20100115
  Serious: Yes (Hospitalization)
  Sender: FDA-Public Use
  Company Number: US-NOVOPROD-289724

PATIENT
  Age: 77 Year
  Sex: Female
  Weight: 100 kg

DRUGS (8)
  1. NOVOLIN R [Suspect]
     Indication: TYPE 1 DIABETES MELLITUS
     Dosage: 40 IU PER HOUR HIGH AS 100 IU/HOUR W/ BS }300
  2. NOVOLIN R [Suspect]
     Dosage: SLIDING SCALE AT HOME
  3. METFORMIN [Concomitant]
     Indication: TYPE 1 DIABETES MELLITUS
     Route: 048
  4. PROZAC                             /00724401/ [Concomitant]
     Indication: DRUG USE FOR UNKNOWN INDICATION
     Route: 048
  5. LOVASTATIN [Concomitant]
     Indication: DRUG USE FOR UNKNOWN INDICATION
     Route: 048
  6. NORVASC [Concomitant]
     Indication: DRUG USE FOR UNKNOWN INDICATION
     Route: 048
  7. ATENOLOL [Concomitant]
     Indication: DRUG USE FOR UNKNOWN INDICATION
     Route: 048
  8. LISINOPRIL [Concomitant]
     Indication: DRUG USE FOR UNKNOWN INDICATION
     Route: 048

REACTIONS (3)
  - BLOOD GLUCOSE INCREASED [None]
  - DEHYDRATION [None]
  - MENTAL STATUS CHANGES [None]
